FAERS Safety Report 11436856 (Version 2)
Quarter: 2015Q3

REPORT INFORMATION
  Report Type: Spontaneous
  Country: US (occurrence: US)
  Receive Date: 20150821
  Receipt Date: 20150831
  Transmission Date: 20151125
  Serious: No
  Sender: FDA-Public Use
  Company Number: US-ELI_LILLY_AND_COMPANY-US200610003121

PATIENT
  Age: 59 Year
  Sex: Female
  Weight: 48.53 kg

DRUGS (2)
  1. CYMBALTA [Suspect]
     Active Substance: DULOXETINE HYDROCHLORIDE
     Indication: FIBROMYALGIA
     Dosage: 30 MG, UNK
     Dates: start: 20060930, end: 20061004
  2. CYMBALTA [Suspect]
     Active Substance: DULOXETINE HYDROCHLORIDE
     Dosage: 60 MG, DAILY (1/D)
     Dates: start: 20061004

REACTIONS (20)
  - Suicidal ideation [Recovered/Resolved]
  - Decreased appetite [Recovered/Resolved]
  - Headache [Unknown]
  - Insomnia [Unknown]
  - Abdominal pain upper [Unknown]
  - Tremor [Unknown]
  - Hostility [Recovering/Resolving]
  - Nausea [Unknown]
  - Somnolence [Unknown]
  - Personality change [Recovering/Resolving]
  - Emotional distress [Recovering/Resolving]
  - Negative thoughts [Recovering/Resolving]
  - Homicidal ideation [Recovered/Resolved]
  - Constipation [Recovering/Resolving]
  - Judgement impaired [Unknown]
  - Weight decreased [Recovered/Resolved]
  - Palpitations [Recovered/Resolved]
  - Reflexes abnormal [Unknown]
  - Eye pain [Unknown]
  - Impaired driving ability [Unknown]
